FAERS Safety Report 18184619 (Version 1)
Quarter: 2020Q3

REPORT INFORMATION
  Report Type: Spontaneous
  Country: US (occurrence: US)
  Receive Date: 20200824
  Receipt Date: 20200824
  Transmission Date: 20201103
  Serious: Yes (Other)
  Sender: FDA-Public Use
  Company Number: US-JNJFOC-20200823408

PATIENT
  Sex: Female

DRUGS (2)
  1. JBABY BABY POWDER UNSPECIFIED [ZINC OXIDE] [Suspect]
     Active Substance: ZINC OXIDE
     Indication: INTENTIONAL PRODUCT USE ISSUE
  2. JBABY BABY POWDER UNSPECIFIED [ZINC OXIDE] [Suspect]
     Active Substance: ZINC OXIDE
     Indication: EXPOSURE VIA INGESTION
     Route: 048

REACTIONS (4)
  - Uterine cancer [Unknown]
  - Intentional product use issue [Unknown]
  - Exposure via ingestion [Unknown]
  - Abnormal behaviour [Unknown]
